FAERS Safety Report 8733005 (Version 2)
Quarter: 2012Q4

REPORT INFORMATION
  Report Type: 
  Country: US (occurrence: US)
  Receive Date: 20120820
  Receipt Date: 20120828
  Transmission Date: 20130627
  Serious: Yes (Other)
  Sender: FDA-Public Use
  Company Number: CHPA2012US017987

PATIENT
  Sex: Female

DRUGS (5)
  1. EXCEDRIN EXTRA STRENGTH [Suspect]
     Indication: ARTHRITIS
     Dosage: 1DF almost every day
     Route: 048
  2. EXCEDRIN EXTRA STRENGTH [Suspect]
     Dosage: 3DF
     Route: 048
  3. ANTIDEPRESSANTS [Concomitant]
     Indication: MIGRAINE
     Dosage: UNK
     Route: 048
     Dates: start: 2000
  4. BENADRYL ^PFIZER WARNER-LAMBERT^ [Concomitant]
     Indication: HYPERSENSITIVITY
  5. ANACIN                             /00141001/ [Concomitant]

REACTIONS (4)
  - Hiatus hernia [Not Recovered/Not Resolved]
  - Arthritis [Not Recovered/Not Resolved]
  - Pain [Not Recovered/Not Resolved]
  - Incorrect dose administered [Unknown]
